FAERS Safety Report 10241434 (Version 1)
Quarter: 2014Q2

REPORT INFORMATION
  Report Type: Spontaneous
  Country: BR (occurrence: BR)
  Receive Date: 20140617
  Receipt Date: 20140617
  Transmission Date: 20141212
  Serious: Yes (Other)
  Sender: FDA-Public Use
  Company Number: BR-SA-2014SA074428

PATIENT
  Sex: Female

DRUGS (2)
  1. LANTUS [Suspect]
     Indication: DIABETES MELLITUS
     Route: 065
  2. DEVICE NOS [Concomitant]

REACTIONS (3)
  - Dementia Alzheimer^s type [Unknown]
  - Parkinson^s disease [Unknown]
  - Dementia [Unknown]
